FAERS Safety Report 8513968-9 (Version None)
Quarter: 2012Q2

REPORT INFORMATION
  Report Type: 
  Country: None (occurrence: None)
  Receive Date: 20120406
  Receipt Date: 20110125
  Transmission Date: 20120825
  Serious: Yes (Other)
  Sender: FDA-Public Use
  Company Number: PHHY2011US06370

PATIENT
  Age: 48 Year
  Sex: Female

DRUGS (1)
  1. TASIGNA [Suspect]
     Indication: CHRONIC MYELOID LEUKAEMIA
     Dosage: 300 MG, BID, ORAL
     Route: 048
     Dates: start: 20101127

REACTIONS (5)
  - SWOLLEN TONGUE [None]
  - PRURITUS [None]
  - ERYTHEMA [None]
  - MUSCLE SPASMS [None]
  - CONFUSIONAL STATE [None]
